FAERS Safety Report 6835017-0 (Version None)
Quarter: 2010Q3

REPORT INFORMATION
  Report Type: 
  Country: None (occurrence: None)
  Receive Date: 20100713
  Receipt Date: 20100601
  Transmission Date: 20110219
  Serious: No
  Sender: FDA-Public Use
  Company Number: US-BIOGENIDEC-2010BI010900

PATIENT
  Sex: Female

DRUGS (1)
  1. TYSABRI [Suspect]
     Indication: MULTIPLE SCLEROSIS
     Route: 042
     Dates: start: 20090508

REACTIONS (13)
  - ABDOMINAL DISCOMFORT [None]
  - DEPRESSION [None]
  - DIZZINESS [None]
  - DYSPEPSIA [None]
  - GASTRIC ULCER [None]
  - HEADACHE [None]
  - INSOMNIA [None]
  - NEPHROLITHIASIS [None]
  - PRURITUS [None]
  - SENSORY DISTURBANCE [None]
  - STRESS [None]
  - VIITH NERVE PARALYSIS [None]
  - VOMITING [None]
